FAERS Safety Report 14391008 (Version 1)
Quarter: 2018Q1

REPORT INFORMATION
  Report Type: Report from Study
  Country: US (occurrence: US)
  Receive Date: 20180116
  Receipt Date: 20180116
  Transmission Date: 20180509
  Serious: Yes (Death, Other)
  Sender: FDA-Public Use
  Company Number: US-TEVA-2018-US-846850

PATIENT
  Age: 25 Year
  Sex: Female

DRUGS (1)
  1. BUPROPION. [Suspect]
     Active Substance: BUPROPION
     Route: 048

REACTIONS (5)
  - Cardiac arrest [Unknown]
  - Toxicity to various agents [Fatal]
  - Hypotension [Unknown]
  - Acute respiratory distress syndrome [Unknown]
  - Status epilepticus [Unknown]
